FAERS Safety Report 7411289-9 (Version None)
Quarter: 2011Q2

REPORT INFORMATION
  Report Type: 
  Country: None (occurrence: None)
  Receive Date: 20110413
  Receipt Date: 20100526
  Transmission Date: 20111010
  Serious: No
  Sender: FDA-Public Use
  Company Number: US-BRISTOL-MYERS SQUIBB COMPANY-15122054

PATIENT
  Sex: Male

DRUGS (3)
  1. RADIATION THERAPY [Suspect]
     Indication: HEAD AND NECK CANCER
  2. RADIATION THERAPY [Suspect]
  3. ERBITUX [Suspect]
     Indication: HEAD AND NECK CANCER

REACTIONS (3)
  - MADAROSIS [None]
  - EXFOLIATIVE RASH [None]
  - PARONYCHIA [None]
